FAERS Safety Report 12688128 (Version 1)
Quarter: 2016Q3

REPORT INFORMATION
  Report Type: Spontaneous
  Country: US (occurrence: None)
  Receive Date: 20160825
  Receipt Date: 20160825
  Transmission Date: 20161109
  Serious: No
  Sender: FDA-Public Use
  Company Number: None

PATIENT

DRUGS (2)
  1. LAMOTRIGINE LAMOTRIGINE [Suspect]
     Active Substance: LAMOTRIGINE
     Route: 048
  2. LOSARTAN POTASSIUM LOSARTAN POTASSIUM [Suspect]
     Active Substance: LOSARTAN POTASSIUM
     Route: 048

REACTIONS (3)
  - Wrong drug administered [None]
  - Product label confusion [None]
  - Drug dispensing error [None]
